FAERS Safety Report 9408142 (Version 5)
Quarter: 2014Q3

REPORT INFORMATION
  Report Type: Spontaneous
  Country: JP (occurrence: None)
  Receive Date: 20130716
  Receipt Date: 20140825
  Transmission Date: 20150326
  Serious: Yes (Hospitalization, Other)
  Sender: FDA-Public Use
  Company Number: ADR-2013-01169

PATIENT
  Age: 12 Year
  Sex: Male
  Weight: 28 kg

DRUGS (1)
  1. GABALON INTRATHECAL (0.005% 1 ML) [Suspect]
     Active Substance: BACLOFEN
     Dosage: SEE B5
     Dates: start: 20130205

REACTIONS (9)
  - Hepatic failure [None]
  - General physical health deterioration [None]
  - Hyperhidrosis [None]
  - Dehydration [None]
  - Renal failure [None]
  - Ascites [None]
  - Leukocytosis [None]
  - Rhabdomyolysis [None]
  - Stress [None]

NARRATIVE: CASE EVENT DATE: 20130205
